FAERS Safety Report 6550371-5 (Version None)
Quarter: 2010Q1

REPORT INFORMATION
  Report Type: 
  Country: None (occurrence: None)
  Receive Date: 20100125
  Receipt Date: 20100113
  Transmission Date: 20100710
  Serious: Yes (Disabling)
  Sender: FDA-Public Use
  Company Number: DE-GENENTECH-296870

PATIENT
  Sex: Female
  Weight: 110 kg

DRUGS (4)
  1. MABTHERA [Suspect]
     Indication: LYMPHOMA
     Dosage: 700 MG, UNK
     Route: 065
     Dates: start: 20080731, end: 20090817
  2. ENALAPRIL MALEATE [Concomitant]
     Indication: HYPERTENSION
  3. PANTOPRAZOLE [Concomitant]
     Indication: DRUG USE FOR UNKNOWN INDICATION
  4. PHENPROCOUMON [Concomitant]
     Indication: DRUG USE FOR UNKNOWN INDICATION

REACTIONS (1)
  - ENAMEL ANOMALY [None]
